FAERS Safety Report 5177092-8 (Version None)
Quarter: 2006Q4

REPORT INFORMATION
  Report Type: 
  Country: None (occurrence: None)
  Receive Date: 20061207
  Receipt Date: 20061128
  Transmission Date: 20070319
  Serious: Yes (Hospitalization)
  Sender: FDA-Public Use
  Company Number: 2006146345

PATIENT
  Age: 93 Year
  Sex: Female

DRUGS (4)
  1. CLINDAMYCIN [Suspect]
     Indication: ERYSIPELAS
     Dosage: 2400 MG (600 MG, 4 IN 1 D), INTRAVENOUS
     Route: 042
     Dates: start: 20060817, end: 20060821
  2. AMOXICILLIN [Suspect]
     Indication: ERYSIPELAS
     Dosage: 1500 MG (500 MG, 3 IN 1 D), ORAL
     Route: 048
     Dates: start: 20060816, end: 20060821
  3. PENICILLIN G PROCAINE [Suspect]
     Indication: ERYSIPELAS
     Dosage: 4 MU (4 IN 1 D), INTRAVENOUS
     Route: 042
     Dates: start: 20060814, end: 20060819
  4. FUROSEMIDE [Concomitant]

REACTIONS (2)
  - TOXIC SKIN ERUPTION [None]
  - URINARY TRACT INFECTION [None]
